FAERS Safety Report 10886621 (Version 1)
Quarter: 2015Q1

REPORT INFORMATION
  Report Type: Spontaneous
  Country: US (occurrence: US)
  Receive Date: 20150304
  Receipt Date: 20150304
  Transmission Date: 20150721
  Serious: Yes (Hospitalization, Other)
  Sender: FDA-Public Use
  Company Number: US-GLAXOSMITHKLINE-US2015GSK028505

PATIENT
  Sex: Female
  Weight: 62.59 kg

DRUGS (5)
  1. PEPCID [Concomitant]
     Active Substance: FAMOTIDINE
  2. HYCAMTIN [Suspect]
     Active Substance: TOPOTECAN HYDROCHLORIDE
     Indication: LUNG NEOPLASM MALIGNANT
     Dosage: 3 MG, CYC
     Route: 048
     Dates: start: 20150127
  3. ACETAMINOPHEN. [Concomitant]
     Active Substance: ACETAMINOPHEN
  4. HYDROCODONE [Concomitant]
     Active Substance: HYDROCODONE
  5. TEMAZEPAM. [Concomitant]
     Active Substance: TEMAZEPAM

REACTIONS (1)
  - Gastric infection [Unknown]
